FAERS Safety Report 7174277-6 (Version None)
Quarter: 2010Q4

REPORT INFORMATION
  Report Type: 
  Country: None (occurrence: None)
  Receive Date: 20101215
  Receipt Date: 20101215
  Transmission Date: 20110411
  Serious: Yes (Disabling)
  Sender: FDA-Public Use
  Company Number: None

PATIENT
  Sex: Female
  Weight: 192 kg

DRUGS (1)
  1. LIPITOR [Suspect]
     Indication: BLOOD CHOLESTEROL INCREASED
     Dosage: 1 1 DAILY
     Dates: start: 20010601, end: 20101122

REACTIONS (4)
  - ARTHROPATHY [None]
  - DISCOMFORT [None]
  - MUSCLE SPASMS [None]
  - RHABDOMYOLYSIS [None]
